FAERS Safety Report 13543942 (Version 1)
Quarter: 2017Q2

REPORT INFORMATION
  Report Type: Spontaneous
  Country: US (occurrence: US)
  Receive Date: 20170515
  Receipt Date: 20170515
  Transmission Date: 20170830
  Serious: No
  Sender: FDA-Public Use
  Company Number: US-TEVA-702277USA

PATIENT
  Age: 61 Year
  Sex: Male
  Weight: 79.45 kg

DRUGS (1)
  1. CEFALEXIN [Suspect]
     Active Substance: CEPHALEXIN
     Indication: LOCALISED INFECTION
     Route: 065
     Dates: start: 20160910

REACTIONS (5)
  - Pruritus [Unknown]
  - Scratch [Unknown]
  - Skin reaction [Unknown]
  - Asthma [Unknown]
  - Skin irritation [Unknown]

NARRATIVE: CASE EVENT DATE: 201609
